FAERS Safety Report 4445251-5 (Version None)
Quarter: 2004Q3

REPORT INFORMATION
  Report Type: 
  Country: None (occurrence: None)
  Receive Date: 20040907
  Receipt Date: 20040820
  Transmission Date: 20050211
  Serious: Yes (Hospitalization)
  Sender: FDA-Public Use
  Company Number: 04P-062-0271531-00

PATIENT
  Age: 36 Year
  Sex: Female
  Weight: 80 kg

DRUGS (3)
  1. HUMIRA [Suspect]
     Indication: RHEUMATOID ARTHRITIS
     Dosage: 40 MG, SUBCUTANEOUS
     Route: 058
     Dates: start: 20040301, end: 20040401
  2. IBUPROFEN [Concomitant]
  3. PREDNISOLONE [Concomitant]

REACTIONS (1)
  - LUPUS-LIKE SYNDROME [None]
